FAERS Safety Report 19795582 (Version 1)
Quarter: 2021Q3

REPORT INFORMATION
  Report Type: Spontaneous
  Country: US (occurrence: US)
  Receive Date: 20210903
  Receipt Date: 20210903
  Transmission Date: 20211014
  Serious: Yes (Other)
  Sender: FDA-Public Use
  Company Number: None

PATIENT
  Age: 68 Year
  Sex: Male
  Weight: 99 kg

DRUGS (1)
  1. WIXELA INHUB [Suspect]
     Active Substance: FLUTICASONE PROPIONATE\SALMETEROL XINAFOATE
     Indication: CHRONIC OBSTRUCTIVE PULMONARY DISEASE
     Route: 055
     Dates: start: 20210210, end: 20210619

REACTIONS (4)
  - Therapy change [None]
  - Product substitution issue [None]
  - Aphonia [None]
  - Dysphonia [None]

NARRATIVE: CASE EVENT DATE: 20210619
